FAERS Safety Report 5915289-7 (Version None)
Quarter: 2008Q4

REPORT INFORMATION
  Report Type: 
  Country: None (occurrence: None)
  Receive Date: 20081010
  Receipt Date: 20080930
  Transmission Date: 20090506
  Serious: Yes (Other)
  Sender: FDA-Public Use
  Company Number: US-BAYER-200834665NA

PATIENT
  Age: 79 Year
  Sex: Male

DRUGS (2)
  1. NEXAVAR [Suspect]
     Indication: MALIGNANT MELANOMA
     Dosage: AS USED: 400 MG  UNIT DOSE: 200 MG
     Route: 048
     Dates: start: 20050101
  2. NEXAVAR [Suspect]
     Dosage: AS USED: 200 MG  UNIT DOSE: 200 MG
     Route: 048
     Dates: end: 20080911

REACTIONS (4)
  - ATRIAL FIBRILLATION [None]
  - CARDIOTOXICITY [None]
  - EJECTION FRACTION DECREASED [None]
  - NEUROPATHY PERIPHERAL [None]
